FAERS Safety Report 14547668 (Version 1)
Quarter: 2018Q1

REPORT INFORMATION
  Report Type: Spontaneous
  Country: US (occurrence: US)
  Receive Date: 20180219
  Receipt Date: 20180219
  Transmission Date: 20180509
  Serious: No
  Sender: FDA-Public Use
  Company Number: US-TEVA-2018-US-862586

PATIENT
  Sex: Female

DRUGS (18)
  1. AUSTEDO [Suspect]
     Active Substance: DEUTETRABENAZINE
     Indication: PARKINSON^S DISEASE
     Dosage: 7 WEEK TITRATION
     Route: 048
     Dates: start: 20171209
  2. VITAMIN D [Concomitant]
     Active Substance: CHOLECALCIFEROL
  3. AMLODIPINE BESYLATE. [Concomitant]
     Active Substance: AMLODIPINE BESYLATE
  4. ASPIRIN. [Concomitant]
     Active Substance: ASPIRIN
  5. DEPAKENE [Concomitant]
     Active Substance: VALPROIC ACID
  6. DOCUSATE SODIUM. [Concomitant]
     Active Substance: DOCUSATE SODIUM
  7. ATENOLOL. [Concomitant]
     Active Substance: ATENOLOL
  8. BENZTROPINE. [Concomitant]
     Active Substance: BENZTROPINE
  9. LEVOTHYROXINE SODIUM. [Concomitant]
     Active Substance: LEVOTHYROXINE SODIUM
  10. LAMICTAL [Concomitant]
     Active Substance: LAMOTRIGINE
  11. SIMVASTATIN. [Concomitant]
     Active Substance: SIMVASTATIN
  12. MYLANTA [Concomitant]
     Active Substance: ALUMINUM HYDROXIDE\DIMETHICONE\MAGNESIUM HYDROXIDE
  13. REMERON [Concomitant]
     Active Substance: MIRTAZAPINE
  14. ZYPREXA [Concomitant]
     Active Substance: OLANZAPINE
  15. LAMOTRIGINE. [Concomitant]
     Active Substance: LAMOTRIGINE
  16. LIDODERM [Concomitant]
     Active Substance: LIDOCAINE
  17. NEURONTIN [Concomitant]
     Active Substance: GABAPENTIN
  18. TYLENOL EXTRA STRENGTH [Concomitant]
     Active Substance: ACETAMINOPHEN

REACTIONS (5)
  - Asthenia [Unknown]
  - Drug ineffective [Unknown]
  - Product use in unapproved indication [Unknown]
  - Dyskinesia [Unknown]
  - Somnolence [Unknown]
